FAERS Safety Report 4486116-2 (Version None)
Quarter: 2004Q4

REPORT INFORMATION
  Report Type: 
  Country: None (occurrence: None)
  Receive Date: 20041026
  Receipt Date: 20030605
  Transmission Date: 20050328
  Serious: Yes (Hospitalization, Other)
  Sender: FDA-Public Use
  Company Number: US-MERCK-0306USA00771

PATIENT
  Age: 53 Year
  Sex: Female
  Weight: 86 kg

DRUGS (11)
  1. VIOXX [Suspect]
     Indication: ARTHRITIS
     Route: 048
     Dates: start: 20010522, end: 20010810
  2. VIOXX [Suspect]
     Route: 048
  3. ADVIL [Concomitant]
     Route: 048
  4. PREMPRO [Concomitant]
     Route: 065
  5. PRILOSEC [Concomitant]
     Route: 065
  6. SYNTHROID [Concomitant]
     Route: 065
  7. DIOVAN [Concomitant]
     Route: 065
  8. DIMETHYL SULFONE [Concomitant]
     Route: 065
  9. GAVISCON ANTACID TABLETS [Concomitant]
     Route: 065
  10. HYDROCODONE HYDROCHLORIDE [Concomitant]
     Route: 065
  11. [THERAPY UNSPECIFIED] [Concomitant]
     Route: 048

REACTIONS (30)
  - ALOPECIA SCARRING [None]
  - ANGINA PECTORIS [None]
  - ANTIPHOSPHOLIPID SYNDROME [None]
  - ASTHENIA [None]
  - BACK DISORDER [None]
  - BALANCE DISORDER [None]
  - BLOOD PRESSURE INCREASED [None]
  - CEREBROVASCULAR ACCIDENT [None]
  - COMPLEMENT FACTOR C3 DECREASED [None]
  - COMPLEMENT FACTOR C4 DECREASED [None]
  - CONVULSION [None]
  - COW'S MILK INTOLERANCE [None]
  - DIABETES MELLITUS NON-INSULIN-DEPENDENT [None]
  - DIZZINESS [None]
  - DRUG HYPERSENSITIVITY [None]
  - GAIT DISTURBANCE [None]
  - GASTROOESOPHAGEAL REFLUX DISEASE [None]
  - HEMIPARESIS [None]
  - HYPERGLYCAEMIA [None]
  - ISCHAEMIA [None]
  - LABYRINTHITIS [None]
  - LOOSE STOOLS [None]
  - MUSCLE SPASMS [None]
  - NECK INJURY [None]
  - TINNITUS [None]
  - TONGUE ULCERATION [None]
  - URTICARIA [None]
  - URTICARIA GENERALISED [None]
  - VASCULITIS [None]
  - VERTIGO [None]
